FAERS Safety Report 20135867 (Version 1)
Quarter: 2021Q4

REPORT INFORMATION
  Report Type: Spontaneous
  Country: US (occurrence: None)
  Receive Date: 20211130
  Receipt Date: 20211130
  Transmission Date: 20220303
  Serious: No
  Sender: FDA-Public Use
  Company Number: None

PATIENT

DRUGS (2)
  1. CALCIUM GLUCONATE [Suspect]
     Active Substance: CALCIUM GLUCONATE
  2. DEVICE [Suspect]
     Active Substance: DEVICE

REACTIONS (4)
  - Incorrect route of product administration [None]
  - Incorrect drug administration rate [None]
  - Drug monitoring procedure not performed [None]
  - Device information output issue [None]
